FAERS Safety Report 6037182-4 (Version None)
Quarter: 2009Q1

REPORT INFORMATION
  Report Type: 
  Country: None (occurrence: None)
  Receive Date: 20090114
  Receipt Date: 20090107
  Transmission Date: 20090719
  Serious: Yes (Hospitalization)
  Sender: FDA-Public Use
  Company Number: JP-MERCK-0811USA01463

PATIENT
  Age: 81 Year
  Sex: Female
  Weight: 36 kg

DRUGS (3)
  1. FOSAMAX [Suspect]
     Indication: OSTEOPOROSIS
     Route: 048
     Dates: start: 20080915, end: 20081013
  2. ELCITONIN [Suspect]
     Indication: OSTEOPOROSIS
     Route: 030
     Dates: start: 20080915, end: 20081013
  3. THYRADIN-S [Suspect]
     Indication: HYPOTHYROIDISM
     Route: 048
     Dates: start: 19750101

REACTIONS (1)
  - PNEUMONIA [None]
